FAERS Safety Report 5201727-4 (Version None)
Quarter: 2007Q1

REPORT INFORMATION
  Report Type: 
  Country: None (occurrence: None)
  Receive Date: 20070104
  Receipt Date: 20061222
  Transmission Date: 20070707
  Serious: Yes (Death, Life-Threatening, Hospitalization, Disabling)
  Sender: FDA-Public Use
  Company Number: 2006JP005035

PATIENT
  Age: 11 Year
  Sex: Male
  Weight: 30 kg

DRUGS (20)
  1. PROGRAF [Suspect]
     Indication: BONE MARROW TRANSPLANT
     Dosage: 0.02 MG/KG, CONTINUOUS, IV DRIP
     Route: 041
     Dates: start: 20060608, end: 20060718
  2. TARGOCID [Suspect]
     Indication: ENTEROCOCCAL INFECTION
     Dosage: 200 MG, UID/QD, IV NOS
     Route: 042
     Dates: start: 20060716, end: 20060718
  3. MABLIN (BUSULFAN) [Concomitant]
  4. CYCLOPHOSPHAMIDE [Concomitant]
  5. METHOTREXATE (METHOTREXATE SODIUM) [Concomitant]
  6. LEVOFLOXACIN [Concomitant]
  7. VFEND [Concomitant]
  8. URSO (URSODEOXYCHOLIC ACID) [Concomitant]
  9. ZOVIRAX [Concomitant]
  10. NORMAL HUMAN IMMUNOGLOBULIN [Concomitant]
  11. NEUTROGIN (LENOGRASTIM) [Concomitant]
  12. ONDANSETRON HCL [Concomitant]
  13. LAXOBERON (SODIUM PICOSULFATE) [Concomitant]
  14. BACTRIM [Concomitant]
  15. CALONAL [Concomitant]
  16. LASIX [Concomitant]
  17. KYTRIL [Concomitant]
  18. ATARAX (ALPRAZOLAM) [Concomitant]
  19. MORPHINE [Concomitant]
  20. CARBENIN (BETAMIPRON, PANIPENEM) [Concomitant]

REACTIONS (19)
  - ALANINE AMINOTRANSFERASE INCREASED [None]
  - ASCITES [None]
  - ASPARTATE AMINOTRANSFERASE INCREASED [None]
  - CYTOMEGALOVIRUS INFECTION [None]
  - DRUG LEVEL INCREASED [None]
  - ENTEROCOCCAL INFECTION [None]
  - FLUID RETENTION [None]
  - HEPATIC FUNCTION ABNORMAL [None]
  - HERPES VIRUS INFECTION [None]
  - INTERSTITIAL LUNG DISEASE [None]
  - NAUSEA [None]
  - PAIN [None]
  - PATHOGEN RESISTANCE [None]
  - PLATELET COUNT DECREASED [None]
  - PLEURAL EFFUSION [None]
  - RENAL IMPAIRMENT [None]
  - STAPHYLOCOCCAL INFECTION [None]
  - THROMBOTIC MICROANGIOPATHY [None]
  - VENOOCCLUSIVE LIVER DISEASE [None]
